FAERS Safety Report 5122555-4 (Version None)
Quarter: 2006Q4

REPORT INFORMATION
  Report Type: 
  Country: None (occurrence: None)
  Receive Date: 20061009
  Receipt Date: 20060928
  Transmission Date: 20070319
  Serious: Yes (Hospitalization)
  Sender: FDA-Public Use
  Company Number: US-JNJFOC-20060906624

PATIENT
  Sex: Female
  Weight: 84.82 kg

DRUGS (9)
  1. REMICADE [Suspect]
     Indication: RHEUMATOID ARTHRITIS
     Route: 042
  2. METHOTREXATE [Concomitant]
  3. FOLIC ACID [Concomitant]
  4. PREDNISONE [Concomitant]
     Dosage: DOSAGE 5-10 MG
  5. METOPROLOL TARTRATE [Concomitant]
  6. BENAZEPRIL HYDROCHLORIDE [Concomitant]
  7. NEXIUM [Concomitant]
  8. CALCIUM GLUCONATE [Concomitant]
  9. VICODIN [Concomitant]

REACTIONS (3)
  - NEUTROPENIA [None]
  - OESOPHAGEAL CANDIDIASIS [None]
  - ORAL CANDIDIASIS [None]
